FAERS Safety Report 19930940 (Version 2)
Quarter: 2021Q4

REPORT INFORMATION
  Report Type: Spontaneous
  Country: US (occurrence: US)
  Receive Date: 20211007
  Receipt Date: 20211108
  Transmission Date: 20220303
  Serious: No
  Sender: FDA-Public Use
  Company Number: US-PFIZER INC-202101299011

PATIENT
  Age: 41 Year
  Sex: Female
  Weight: 78.02 kg

DRUGS (4)
  1. DESVENLAFAXINE SUCCINATE [Suspect]
     Active Substance: DESVENLAFAXINE SUCCINATE
     Indication: Bipolar disorder
     Dosage: 200 MG, ONCE DAILY (100 MG 2 TABLETS ONCE A DAY, NOT-TAKING/PRN)
     Route: 048
  2. PROTONIX [Suspect]
     Active Substance: PANTOPRAZOLE SODIUM
     Indication: Gastrooesophageal reflux disease
     Dosage: 40 MG, ONCE DAILY
     Route: 048
  3. PROTONIX [Suspect]
     Active Substance: PANTOPRAZOLE SODIUM
     Dosage: 40 MG, TWICE DAILY
     Route: 048
  4. PRISTIQ EXTENDED-RELEASE [Suspect]
     Active Substance: DESVENLAFAXINE SUCCINATE
     Indication: Bipolar disorder
     Dosage: 200 MG, ONCE DAILY
     Route: 048
     Dates: start: 20191111

REACTIONS (4)
  - Anxiety [Unknown]
  - Sleep disorder [Unknown]
  - Obesity [Unknown]
  - Off label use [Unknown]
